FAERS Safety Report 6469969-8 (Version None)
Quarter: 2009Q4

REPORT INFORMATION
  Report Type: 
  Country: None (occurrence: None)
  Receive Date: 20091203
  Receipt Date: 20091123
  Transmission Date: 20100525
  Serious: Yes (Other)
  Sender: FDA-Public Use
  Company Number: PL-ROCHE-671476

PATIENT
  Sex: Female

DRUGS (1)
  1. BONIVA [Suspect]
     Indication: DRUG USE FOR UNKNOWN INDICATION
     Dosage: FIRST ADMINISTRATION. BOLUS GIVEN OVER 15-30 SECONDS.
     Route: 040

REACTIONS (1)
  - BLOOD PRESSURE FLUCTUATION [None]
